FAERS Safety Report 8612852-X (Version None)
Quarter: 2012Q3

REPORT INFORMATION
  Report Type: 
  Country: None (occurrence: None)
  Receive Date: 20120822
  Receipt Date: 20110902
  Transmission Date: 20120928
  Serious: No
  Sender: FDA-Public Use
  Company Number: US-ASTRAZENECA-2011SE32145

PATIENT
  Age: 66 Year
  Sex: Female
  Weight: 58.1 kg

DRUGS (4)
  1. ANAPARIL [Concomitant]
     Indication: HYPERTENSION
  2. LOVASTATIN [Concomitant]
     Indication: HYPERCHOLESTEROLAEMIA
  3. FURISOMIDE [Concomitant]
     Indication: DIURETIC THERAPY
  4. SYMBICORT [Suspect]
     Dosage: 160/4.5 MCG UNKNOWN FREQUENCY
     Route: 055
     Dates: start: 20110523

REACTIONS (1)
  - DYSPNOEA [None]
